FAERS Safety Report 7523139-0 (Version None)
Quarter: 2011Q2

REPORT INFORMATION
  Report Type: 
  Country: None (occurrence: None)
  Receive Date: 20110601
  Receipt Date: 20110601
  Transmission Date: 20111010
  Serious: Yes (Life-Threatening, Hospitalization, Disabling)
  Sender: FDA-Public Use
  Company Number: None

PATIENT
  Age: 58 Year
  Sex: Male
  Weight: 81.6475 kg

DRUGS (1)
  1. LYRICA [Suspect]
     Indication: PAIN MANAGEMENT
     Dosage: ONE CAPSULE TWICE DAILY PO
     Route: 048
     Dates: start: 20110518, end: 20110523

REACTIONS (6)
  - BLOOD PRESSURE DECREASED [None]
  - CARDIAC ARREST [None]
  - AMNESIA [None]
  - RESPIRATORY ARREST [None]
  - CONVULSION [None]
  - FEELING ABNORMAL [None]
